FAERS Safety Report 20721760 (Version 2)
Quarter: 2022Q2

REPORT INFORMATION
  Report Type: Report from Study
  Country: US (occurrence: US)
  Receive Date: 20220418
  Receipt Date: 20220621
  Transmission Date: 20220720
  Serious: Yes (Other)
  Sender: FDA-Public Use
  Company Number: US-UCBSA-2022021327

PATIENT
  Age: 14 Year
  Sex: Male

DRUGS (9)
  1. LEVETIRACETAM [Suspect]
     Active Substance: LEVETIRACETAM
     Indication: Juvenile myoclonic epilepsy
     Dosage: 1500 MILLIGRAM (1000 MG-1.5 TSBLETS), 2X/DAY (BID)
     Route: 048
     Dates: end: 2022
  2. LEVETIRACETAM [Suspect]
     Active Substance: LEVETIRACETAM
     Indication: Seizure
  3. VIMPAT [Suspect]
     Active Substance: LACOSAMIDE
     Indication: Seizure
     Dosage: 200 MILLIGRAM, 2X/DAY (BID)
     Route: 048
     Dates: end: 2022
  4. VIMPAT [Suspect]
     Active Substance: LACOSAMIDE
     Dosage: 250 MG MORNING AND 200 MG AT NIGHT
     Route: 048
     Dates: start: 2022
  5. CLONAZEPAM [Concomitant]
     Active Substance: CLONAZEPAM
     Indication: Seizure
     Dosage: 2 MILLIGRAM
  6. FYCOMPA [Concomitant]
     Active Substance: PERAMPANEL
     Indication: Product used for unknown indication
     Dosage: 12 MILLIGRAM, ONCE DAILY (QD)
  7. LAMOTRIGINE [Concomitant]
     Active Substance: LAMOTRIGINE
     Indication: Product used for unknown indication
  8. VALTOCO [Concomitant]
     Active Substance: DIAZEPAM
     Indication: Seizure
  9. COVID-19 VACCINE [Concomitant]
     Indication: Immunisation

REACTIONS (22)
  - Vagal nerve stimulator implantation [Unknown]
  - Hair follicle tumour benign [Unknown]
  - Partial seizures [Unknown]
  - Scoliosis [Unknown]
  - Circulatory collapse [Unknown]
  - Inguinal hernia repair [Unknown]
  - Metabolic syndrome [Unknown]
  - Rhinitis allergic [Unknown]
  - Penis disorder [Unknown]
  - Gynaecomastia [Unknown]
  - Back pain [Unknown]
  - Lumbar radiculopathy [Unknown]
  - Sunburn [Unknown]
  - Coordination abnormal [Unknown]
  - Headache [Unknown]
  - Stress [Unknown]
  - Seasonal allergy [Unknown]
  - Multiple-drug resistance [Unknown]
  - COVID-19 immunisation [Unknown]
  - Off label use [Unknown]
  - Prescribed overdose [Unknown]
  - Product dose omission issue [Unknown]

NARRATIVE: CASE EVENT DATE: 20130501
